FAERS Safety Report 4322685-0 (Version None)
Quarter: 2004Q1

REPORT INFORMATION
  Report Type: 
  Country: None (occurrence: None)
  Receive Date: 20040318
  Receipt Date: 20031016
  Transmission Date: 20041129
  Serious: Yes (Hospitalization)
  Sender: FDA-Public Use
  Company Number: MK200310-0178-1

PATIENT
  Age: 71 Year
  Sex: Male

DRUGS (1)
  1. OPTIRAY 320 [Suspect]
     Dosage: IV, ONCE
     Route: 042
     Dates: start: 20030930, end: 20030930

REACTIONS (4)
  - CYANOSIS [None]
  - DYSPNOEA [None]
  - FLUSHING [None]
  - PAIN [None]
